FAERS Safety Report 4569947-X (Version None)
Quarter: 2005Q1

REPORT INFORMATION
  Report Type: 
  Country: None (occurrence: None)
  Receive Date: 20050204
  Receipt Date: 20050124
  Transmission Date: 20050727
  Serious: Yes (Hospitalization)
  Sender: FDA-Public Use
  Company Number: US-JNJFOC-20031002266

PATIENT
  Sex: Female
  Weight: 68.95 kg

DRUGS (11)
  1. REMICADE [Suspect]
     Dosage: 4 VIALS, 1 IN 1 DAY(S)
     Route: 042
  2. REMICADE [Suspect]
     Indication: CROHN'S DISEASE
     Dosage: 4 VIALS, 1 IN 1 DAY(S)
     Route: 042
  3. NEXIUM [Concomitant]
  4. CIPRO [Concomitant]
  5. FOSAMAX [Concomitant]
  6. AMITRIPTYLINE [Concomitant]
  7. PREMARIN [Concomitant]
  8. TRIAMTERENE AND HYDROCHLOROTHIAZIDE [Concomitant]
  9. TRIAMTERENE AND HYDROCHLOROTHIAZIDE [Concomitant]
  10. ENALAPRIL MALEATE [Concomitant]
  11. VIOXX [Concomitant]

REACTIONS (4)
  - ANEURYSM [None]
  - CEREBROVASCULAR ACCIDENT [None]
  - OEDEMA [None]
  - SWELLING FACE [None]
